FAERS Safety Report 9745482 (Version 2)
Quarter: 2013Q4

REPORT INFORMATION
  Report Type: Spontaneous
  Country: US (occurrence: US)
  Receive Date: 20131211
  Receipt Date: 20131211
  Transmission Date: 20140711
  Serious: No
  Sender: FDA-Public Use
  Company Number: US-BIOGENIDEC-2013BI062584

PATIENT
  Age: 43 Year
  Sex: Female

DRUGS (24)
  1. TECFIDERA [Suspect]
     Indication: MULTIPLE SCLEROSIS
     Route: 048
     Dates: start: 20130714, end: 20130722
  2. TECFIDERA [Suspect]
     Indication: MULTIPLE SCLEROSIS
     Route: 048
     Dates: start: 20130723
  3. TECFIDERA [Suspect]
     Indication: MULTIPLE SCLEROSIS
     Route: 048
     Dates: start: 201311
  4. KLONOPIN [Concomitant]
     Indication: PRODUCT USED FOR UNKNOWN INDICATION
  5. CENTRUM MULTIVITAMIN [Concomitant]
     Indication: PRODUCT USED FOR UNKNOWN INDICATION
  6. CIPRO [Concomitant]
     Indication: PRODUCT USED FOR UNKNOWN INDICATION
  7. NORTRIPTYLINE [Concomitant]
     Indication: PRODUCT USED FOR UNKNOWN INDICATION
  8. BACLOFEN [Concomitant]
     Indication: PRODUCT USED FOR UNKNOWN INDICATION
  9. FLONASE [Concomitant]
     Indication: PRODUCT USED FOR UNKNOWN INDICATION
  10. HYOSCYAMINE ER [Concomitant]
     Indication: PRODUCT USED FOR UNKNOWN INDICATION
  11. MIRALAX POWDER [Concomitant]
     Indication: PRODUCT USED FOR UNKNOWN INDICATION
  12. WELLBUTRIN XL [Concomitant]
     Indication: PRODUCT USED FOR UNKNOWN INDICATION
  13. B-COMPLEX W-VITAMIN C [Concomitant]
     Indication: PRODUCT USED FOR UNKNOWN INDICATION
  14. CALCIUM 600 + D3 SOFTGEL [Concomitant]
     Indication: PRODUCT USED FOR UNKNOWN INDICATION
  15. LOESTRIN FE 1-20 [Concomitant]
     Indication: PRODUCT USED FOR UNKNOWN INDICATION
  16. ALIGN [Concomitant]
     Indication: PRODUCT USED FOR UNKNOWN INDICATION
  17. VITAMIN D [Concomitant]
     Indication: PRODUCT USED FOR UNKNOWN INDICATION
  18. FISH OIL [Concomitant]
     Indication: PRODUCT USED FOR UNKNOWN INDICATION
  19. IBUPROFEN [Concomitant]
     Indication: PRODUCT USED FOR UNKNOWN INDICATION
  20. ACIDOPHILUS [Concomitant]
     Indication: PRODUCT USED FOR UNKNOWN INDICATION
  21. FIBER CHOICE [Concomitant]
     Indication: PRODUCT USED FOR UNKNOWN INDICATION
  22. PERI-COLACE [Concomitant]
     Indication: PRODUCT USED FOR UNKNOWN INDICATION
  23. PREDNISONE [Concomitant]
  24. ADVIL [Concomitant]

REACTIONS (5)
  - Underdose [Unknown]
  - Flushing [Recovered/Resolved]
  - Diarrhoea [Not Recovered/Not Resolved]
  - Abdominal discomfort [Unknown]
  - Rash generalised [Recovered/Resolved]
